FAERS Safety Report 15027886 (Version 1)
Quarter: 2018Q2

REPORT INFORMATION
  Report Type: Other
  Country: GB (occurrence: GB)
  Receive Date: 20180619
  Receipt Date: 20180619
  Transmission Date: 20180711
  Serious: Yes (Other)
  Sender: FDA-Public Use
  Company Number: GB-STRIDES ARCOLAB LIMITED-2018SP005062

PATIENT

DRUGS (9)
  1. LEVETIRACETAM. [Interacting]
     Active Substance: LEVETIRACETAM
     Indication: EPILEPSY
     Dosage: 500 MG, UNKNOWN
     Route: 048
     Dates: start: 20170526
  2. TRIHEXYPHENIDYL [Concomitant]
     Active Substance: TRIHEXYPHENIDYL
     Indication: DYSTONIA
     Dosage: 8 MG, QID
     Route: 065
     Dates: start: 20160720
  3. BACLOFEN. [Concomitant]
     Active Substance: BACLOFEN
     Indication: MUSCLE SPASTICITY
     Dosage: 35 MG, BID
     Route: 065
     Dates: start: 20161025
  4. GABAPENTIN. [Concomitant]
     Active Substance: GABAPENTIN
     Indication: MOVEMENT DISORDER
     Dosage: 150 MG, TID
     Route: 065
     Dates: start: 20180411
  5. MACROGOL, SODIUM CHLORIDE, POTASSIUM CHLORIDE, SODIUM BICARBONATE [Suspect]
     Active Substance: POLYETHYLENE GLYCOL 3350\POTASSIUM CHLORIDE\SODIUM BICARBONATE\SODIUM CHLORIDE
     Indication: CONSTIPATION
     Dosage: 1 DF, UNKNOWN (1 SACHET)
     Route: 065
     Dates: start: 20160707
  6. LEVETIRACETAM. [Interacting]
     Active Substance: LEVETIRACETAM
     Dosage: UNK
     Route: 065
  7. GLYCOPYRRONIUM [Concomitant]
     Active Substance: GLYCOPYRRONIUM
     Indication: SECRETION DISCHARGE
     Dosage: 2 MG, BID
     Route: 065
     Dates: start: 20170410
  8. METHYLPHENIDATE. [Concomitant]
     Active Substance: METHYLPHENIDATE
     Indication: ATTENTION DEFICIT/HYPERACTIVITY DISORDER
     Dosage: 5 MG, BID
     Route: 065
     Dates: start: 20170824
  9. DIPROBASE                          /01132701/ [Concomitant]
     Indication: PRODUCT USED FOR UNKNOWN INDICATION
     Dosage: UNK
     Route: 061

REACTIONS (3)
  - Drug interaction [Unknown]
  - Condition aggravated [Not Recovered/Not Resolved]
  - Seizure [Not Recovered/Not Resolved]

NARRATIVE: CASE EVENT DATE: 20180420
